FAERS Safety Report 6544338-0 (Version None)
Quarter: 2010Q1

REPORT INFORMATION
  Report Type: 
  Country: None (occurrence: None)
  Receive Date: 20100120
  Receipt Date: 20100120
  Transmission Date: 20100710
  Serious: No
  Sender: FDA-Public Use
  Company Number: None

PATIENT

DRUGS (1)
  1. TING ANTIFUNGAL SPRAY POWDER (MICONAZOLE NITRATE 2%) [Suspect]

REACTIONS (5)
  - APPLICATION SITE INFECTION [None]
  - APPLICATION SITE PAIN [None]
  - BURNS SECOND DEGREE [None]
  - CAUSTIC INJURY [None]
  - PRODUCT QUALITY ISSUE [None]
